FAERS Safety Report 5374292-9 (Version None)
Quarter: 2007Q2

REPORT INFORMATION
  Report Type: 
  Country: None (occurrence: None)
  Receive Date: 20070629
  Receipt Date: 20070409
  Transmission Date: 20071010
  Serious: Yes (Hospitalization)
  Sender: FDA-Public Use
  Company Number: AT-ROCHE-217139

PATIENT
  Age: 60 Year
  Sex: Female
  Weight: 72 kg

DRUGS (2)
  1. ISOTRETINOIN [Suspect]
     Indication: MALIGNANT MELANOMA
     Route: 048
     Dates: start: 19971117, end: 19980910
  2. ROFERON-A [Suspect]
     Indication: MALIGNANT MELANOMA
     Route: 058
     Dates: start: 19971117, end: 19990830

REACTIONS (2)
  - RENAL COLIC [None]
  - URINARY TRACT INFECTION [None]
